FAERS Safety Report 19490860 (Version 1)
Quarter: 2021Q3

REPORT INFORMATION
  Report Type: Report from Study
  Country: US (occurrence: US)
  Receive Date: 20210705
  Receipt Date: 20210705
  Transmission Date: 20211014
  Serious: Yes (Other)
  Sender: FDA-Public Use
  Company Number: US-SA-2021SA214353

PATIENT
  Age: 66 Year
  Sex: Female

DRUGS (9)
  1. INTERFERON [Concomitant]
     Active Substance: INTERFERON
     Indication: DERMATITIS ATOPIC
  2. CORTICOSTEROID NOS [Concomitant]
     Active Substance: CORTICOSTEROID NOS
     Dosage: SYSTEMIC
  3. DAPSONE. [Concomitant]
     Active Substance: DAPSONE
     Indication: DERMATITIS ATOPIC
  4. DUPILUMAB [Suspect]
     Active Substance: DUPILUMAB
     Indication: DERMATITIS ATOPIC
  5. GABAPENTIN. [Concomitant]
     Active Substance: GABAPENTIN
     Indication: DERMATITIS ATOPIC
  6. CORTICOSTEROID NOS [Concomitant]
     Active Substance: CORTICOSTEROID NOS
     Indication: DERMATITIS ATOPIC
     Dosage: TOPICAL
  7. MYCOPHENOLATE MOFETIL. [Concomitant]
     Active Substance: MYCOPHENOLATE MOFETIL
     Indication: DERMATITIS ATOPIC
  8. METHOTREXATE. [Concomitant]
     Active Substance: METHOTREXATE
     Indication: DERMATITIS ATOPIC
  9. ADALIMUMAB [Concomitant]
     Active Substance: ADALIMUMAB
     Indication: DERMATITIS ATOPIC

REACTIONS (1)
  - Cutaneous T-cell lymphoma stage II [Unknown]
